FAERS Safety Report 24601304 (Version 3)
Quarter: 2024Q4

REPORT INFORMATION
  Report Type: Spontaneous
  Country: US (occurrence: US)
  Receive Date: 20241111
  Receipt Date: 20241202
  Transmission Date: 20250115
  Serious: Yes (Other)
  Sender: NOVO NORDISK
  Company Number: US-NOVOPROD-1312485

PATIENT
  Age: 69 Year
  Sex: Female

DRUGS (3)
  1. NOVOLIN 70/30 [Suspect]
     Active Substance: INSULIN HUMAN
     Dosage: UNK
     Route: 058
     Dates: start: 20241108
  2. NOVOLIN 70/30 [Suspect]
     Active Substance: INSULIN HUMAN
     Dosage: 60 IU, BID
     Route: 058
     Dates: start: 20241029, end: 20241031
  3. NOVOLIN 70/30 [Suspect]
     Active Substance: INSULIN HUMAN
     Indication: Type 1 diabetes mellitus
     Dosage: 60 IU, BID
     Route: 058
     Dates: start: 20241025, end: 20241026

REACTIONS (5)
  - Hypoacusis [Recovered/Resolved]
  - Carpal tunnel decompression [Unknown]
  - Blood cholesterol abnormal [Unknown]
  - Gastrointestinal disorder [Unknown]
  - Product quality issue [Recovered/Resolved]

NARRATIVE: CASE EVENT DATE: 20241001
